FAERS Safety Report 11145169 (Version 1)
Quarter: 2015Q2

REPORT INFORMATION
  Report Type: Spontaneous
  Country: US (occurrence: None)
  Receive Date: 20150526
  Receipt Date: 20150526
  Transmission Date: 20150821
  Serious: Yes (Other)
  Sender: FDA-Public Use
  Company Number: None

PATIENT
  Age: 61 Year
  Sex: Male
  Weight: 74.84 kg

DRUGS (19)
  1. CREON [Suspect]
     Active Substance: PANCRELIPASE AMYLASE\PANCRELIPASE LIPASE\PANCRELIPASE PROTEASE
     Indication: PANCREATITIS CHRONIC
     Dosage: ONE PILL WITH FOOD, TAKEN BY MOUTH
     Dates: start: 20150515, end: 20150519
  2. CARDURA [Concomitant]
     Active Substance: DOXAZOSIN MESYLATE
  3. VIT. D [Concomitant]
  4. CARDURA [Concomitant]
     Active Substance: DOXAZOSIN MESYLATE
  5. NEXIUM [Concomitant]
     Active Substance: ESOMEPRAZOLE MAGNESIUM
  6. MIRALAX [Concomitant]
     Active Substance: POLYETHYLENE GLYCOL 3350
  7. NASONEX [Concomitant]
     Active Substance: MOMETASONE FUROATE
  8. ARTIFICIAL TEARS [Concomitant]
     Active Substance: GLYCERIN\HYPROMELLOSES\POLYETHYLENE GLYCOL 400
  9. CLONAZEPAM. [Concomitant]
     Active Substance: CLONAZEPAM
  10. NITRO [Concomitant]
     Active Substance: NITROGLYCERIN
  11. EXCEDRIN [Concomitant]
     Active Substance: ACETAMINOPHEN\ASPIRIN\CAFFEINE
  12. AFRIN [Concomitant]
     Active Substance: OXYMETAZOLINE
  13. CLONAZEPAM. [Concomitant]
     Active Substance: CLONAZEPAM
  14. MIRGRAIN [Concomitant]
  15. ADVIL [Concomitant]
     Active Substance: IBUPROFEN
  16. NEFAZONDONE [Concomitant]
  17. INDERAL [Concomitant]
     Active Substance: PROPRANOLOL HYDROCHLORIDE
  18. IBUPROFEN. [Concomitant]
     Active Substance: IBUPROFEN
  19. FLEXERIL [Concomitant]
     Active Substance: CYCLOBENZAPRINE HYDROCHLORIDE

REACTIONS (14)
  - Tremor [None]
  - Speech disorder [None]
  - Dyspnoea [None]
  - Dysgeusia [None]
  - Insomnia [None]
  - Abnormal dreams [None]
  - Depression [None]
  - Dizziness [None]
  - Aggression [None]
  - Palpitations [None]
  - Aphasia [None]
  - Weight decreased [None]
  - Confusional state [None]
  - Anxiety [None]

NARRATIVE: CASE EVENT DATE: 20150517
